FAERS Safety Report 8328875-4 (Version None)
Quarter: 2012Q2

REPORT INFORMATION
  Report Type: 
  Country: None (occurrence: None)
  Receive Date: 20120502
  Receipt Date: 20120425
  Transmission Date: 20120825
  Serious: Yes (Death, Hospitalization, Other)
  Sender: FDA-Public Use
  Company Number: PHHY2012FR012934

PATIENT
  Sex: Male
  Weight: 85 kg

DRUGS (9)
  1. GLEEVEC [Suspect]
     Indication: CHRONIC MYELOID LEUKAEMIA
     Dosage: 400 MG, DAILY
     Route: 048
     Dates: start: 20061215, end: 20080225
  2. OMACETAXINE [Suspect]
     Dates: start: 20100223, end: 20110408
  3. BISOPROLOL FUMARATE [Concomitant]
     Indication: HYPERTENSION
  4. TASIGNA [Suspect]
     Dosage: 600 MG, DAILY
     Route: 048
     Dates: start: 20110408
  5. PLAVIX [Concomitant]
     Indication: ARTERIAL DISORDER
  6. SPRYCEL [Suspect]
     Indication: CHRONIC MYELOID LEUKAEMIA
     Dosage: 100 MG, DAILY
     Route: 048
  7. CRESTOR [Concomitant]
     Indication: DYSLIPIDAEMIA
  8. TASIGNA [Suspect]
     Indication: CHRONIC MYELOID LEUKAEMIA
     Dosage: 800 MG, DAILY
     Route: 048
     Dates: start: 20080422, end: 20100209
  9. ZESTRIL [Concomitant]
     Indication: ARTERIAL DISORDER

REACTIONS (11)
  - PERIPHERAL ISCHAEMIA [None]
  - RENAL FAILURE [None]
  - GENERAL PHYSICAL CONDITION ABNORMAL [None]
  - NECROSIS [None]
  - METASTASES TO BONE [None]
  - OSTEOLYSIS [None]
  - CONFUSIONAL STATE [None]
  - NEOPLASM MALIGNANT [None]
  - HYPERCALCAEMIA OF MALIGNANCY [None]
  - RESPIRATORY DISTRESS [None]
  - ANGIOSARCOMA METASTATIC [None]
